FAERS Safety Report 24038630 (Version 1)
Quarter: 2024Q3

REPORT INFORMATION
  Report Type: Spontaneous
  Country: FR (occurrence: FR)
  Receive Date: 20240702
  Receipt Date: 20240702
  Transmission Date: 20241017
  Serious: Yes (Other)
  Sender: JOHNSON AND JOHNSON
  Company Number: FR-BAYER-2024A094485

PATIENT
  Age: 75 Year
  Sex: Female

DRUGS (3)
  1. RIVAROXABAN [Suspect]
     Active Substance: RIVAROXABAN
     Indication: Cerebrovascular accident prophylaxis
     Dosage: 10 MG,?XARELTO 10 MG
     Route: 048
  2. RIVAROXABAN [Suspect]
     Active Substance: RIVAROXABAN
     Dosage: 20 MG,?XARELTO 20 MG
     Route: 048
  3. ELIQUIS [Concomitant]
     Active Substance: APIXABAN
     Dosage: 5 MG

REACTIONS (8)
  - Hypertension [Unknown]
  - Flatulence [Unknown]
  - Eructation [Unknown]
  - Fatigue [Unknown]
  - Heart rate increased [Unknown]
  - Tinnitus [Unknown]
  - Micturition urgency [Unknown]
  - Heart rate irregular [Unknown]
